FAERS Safety Report 8986286 (Version 1)
Quarter: 2012Q4

REPORT INFORMATION
  Report Type: Spontaneous
  Country: CN (occurrence: None)
  Receive Date: 20121217
  Receipt Date: 20121217
  Transmission Date: 20130627
  Serious: Yes (Life-Threatening, Hospitalization)
  Sender: FDA-Public Use
  Company Number: 2012/177

PATIENT
  Age: 27 Month
  Sex: Female

DRUGS (2)
  1. LEVETIRACETAM [Suspect]
     Indication: SEIZURES
  2. PHENOBARBITAL [Concomitant]

REACTIONS (2)
  - Stevens-Johnson syndrome [None]
  - Convulsion [None]
